FAERS Safety Report 7965826-6 (Version None)
Quarter: 2011Q4

REPORT INFORMATION
  Report Type: 
  Country: None (occurrence: None)
  Receive Date: 20111208
  Receipt Date: 20111206
  Transmission Date: 20120403
  Serious: Yes (Death, Hospitalization)
  Sender: FDA-Public Use
  Company Number: VE-PFIZER INC-2011285502

PATIENT
  Sex: Female

DRUGS (1)
  1. ZOLOFT [Suspect]
     Dosage: UNK
     Route: 048
     Dates: end: 20110101

REACTIONS (2)
  - ABDOMINAL PAIN UPPER [None]
  - PANCYTOPENIA [None]
